FAERS Safety Report 5262151-1 (Version None)
Quarter: 2007Q1

REPORT INFORMATION
  Report Type: 
  Country: None (occurrence: None)
  Receive Date: 20070311
  Receipt Date: 20070228
  Transmission Date: 20070707
  Serious: Yes (Death)
  Sender: FDA-Public Use
  Company Number: 2006UW21679

PATIENT
  Age: 23 Year
  Sex: Male
  Weight: 136.4 kg

DRUGS (3)
  1. SEROQUEL [Suspect]
     Indication: PSYCHOTIC DISORDER
     Route: 048
     Dates: start: 20010101
  2. THORAZINE [Concomitant]
  3. METHADONE HCL [Concomitant]

REACTIONS (3)
  - DEATH [None]
  - HYPERGLYCAEMIA [None]
  - INJURY [None]
